FAERS Safety Report 6829556-6 (Version None)
Quarter: 2010Q3

REPORT INFORMATION
  Report Type: 
  Country: None (occurrence: None)
  Receive Date: 20100709
  Receipt Date: 20070404
  Transmission Date: 20110219
  Serious: No
  Sender: FDA-Public Use
  Company Number: US-PFIZER INC-2007006406

PATIENT
  Sex: Female
  Weight: 70.31 kg

DRUGS (6)
  1. CHANTIX [Suspect]
     Indication: EX-TOBACCO USER
     Dates: start: 20061205
  2. GLUCOPHAGE [Concomitant]
  3. CENTRUM [Concomitant]
  4. ACETYLSALICYLIC ACID [Concomitant]
  5. VITAMIN C [Concomitant]
  6. SSRI [Concomitant]

REACTIONS (1)
  - INSOMNIA [None]
